FAERS Safety Report 19919422 (Version 3)
Quarter: 2024Q4

REPORT INFORMATION
  Report Type: Report from Study
  Country: BR (occurrence: BR)
  Receive Date: 20211005
  Receipt Date: 20241010
  Transmission Date: 20250115
  Serious: Yes (Hospitalization, Disabling, Other)
  Sender: TAKEDA
  Company Number: BR-TAKEDA-BR202031810

PATIENT
  Sex: Male
  Weight: 42 kg

DRUGS (7)
  1. IDURSULFASE [Suspect]
     Active Substance: IDURSULFASE
     Indication: Mucopolysaccharidosis II
     Dosage: 3 DOSAGE FORM
     Route: 065
     Dates: start: 20120920
  2. IDURSULFASE [Suspect]
     Active Substance: IDURSULFASE
     Dosage: 4 DOSAGE FORM, 1/WEEK
     Route: 042
     Dates: start: 202109
  3. IDURSULFASE [Suspect]
     Active Substance: IDURSULFASE
     Dosage: UNK UNK, 1/WEEK
     Route: 042
  4. INOSINE PRANOBEX [Concomitant]
     Active Substance: INOSINE PRANOBEX
     Indication: Relaxation therapy
     Dosage: UNK
     Route: 065
  5. INOSINE PRANOBEX [Concomitant]
     Active Substance: INOSINE PRANOBEX
     Indication: Sleep disorder
  6. SERETIDE [Concomitant]
     Active Substance: FLUTICASONE PROPIONATE\SALMETEROL XINAFOATE
     Indication: Relaxation therapy
     Dosage: UNK
     Route: 065
  7. SERETIDE [Concomitant]
     Active Substance: FLUTICASONE PROPIONATE\SALMETEROL XINAFOATE
     Indication: Sleep disorder

REACTIONS (11)
  - Aphasia [Unknown]
  - Mobility decreased [Unknown]
  - COVID-19 [Recovering/Resolving]
  - Drug hypersensitivity [Unknown]
  - Gastrointestinal disorder [Unknown]
  - Incorrect dose administered [Unknown]
  - Weight decreased [Unknown]
  - Product availability issue [Unknown]
  - Muscle atrophy [Unknown]
  - Gait disturbance [Unknown]
  - Product dose omission issue [Recovered/Resolved]

NARRATIVE: CASE EVENT DATE: 20190101
